FAERS Safety Report 8396023-0 (Version None)
Quarter: 2012Q2

REPORT INFORMATION
  Report Type: 
  Country: None (occurrence: None)
  Receive Date: 20120530
  Receipt Date: 20120522
  Transmission Date: 20120825
  Serious: Yes (Other)
  Sender: FDA-Public Use
  Company Number: US-ASTRAZENECA-2011SE78659

PATIENT
  Age: 51 Year
  Sex: Male

DRUGS (7)
  1. ZANTAC 75 [Concomitant]
     Route: 048
  2. ATIVAN [Concomitant]
     Route: 048
  3. OXYCODONE HCL [Concomitant]
     Route: 048
  4. VITAMIN D [Concomitant]
     Route: 048
  5. CAPRELSA [Suspect]
     Indication: THYROID CANCER
     Route: 048
     Dates: end: 20120401
  6. LEVOXYL [Concomitant]
     Route: 048
  7. PROCHLORPERAZINE MALEATE [Concomitant]
     Route: 048

REACTIONS (7)
  - FATIGUE [None]
  - DIARRHOEA [None]
  - BLOOD CALCITONIN INCREASED [None]
  - DIZZINESS [None]
  - DERMATITIS ACNEIFORM [None]
  - ARTHRALGIA [None]
  - NIGHT SWEATS [None]
